FAERS Safety Report 4700089-6 (Version None)
Quarter: 2005Q2

REPORT INFORMATION
  Report Type: 
  Country: None (occurrence: None)
  Receive Date: 20050623
  Receipt Date: 20050623
  Transmission Date: 20051028
  Serious: Yes (Life-Threatening, Hospitalization)
  Sender: FDA-Public Use
  Company Number: None

PATIENT
  Sex: Female
  Weight: 46.6751 kg

DRUGS (8)
  1. IODOTOPE [Suspect]
     Indication: ANAPLASTIC ASTROCYTOMA
     Dosage: 80 MCI INTRATHECAL
     Route: 037
     Dates: start: 20030628
  2. CHIMERIC 81C8 [Suspect]
     Indication: ANAPLASTIC ASTROCYTOMA
     Dosage: 10 MG INTRATHECAL
     Route: 037
     Dates: start: 20030628
  3. KEPPRA [Concomitant]
  4. MULTI-VITAMIN [Concomitant]
  5. DECADRON [Concomitant]
  6. PRILOSEC [Concomitant]
  7. LASIX [Concomitant]
  8. KCL SUPPLEMENT [Concomitant]

REACTIONS (1)
  - PULMONARY EMBOLISM [None]
